FAERS Safety Report 13916140 (Version 1)
Quarter: 2017Q3

REPORT INFORMATION
  Report Type: Report from Study
  Country: AU (occurrence: AU)
  Receive Date: 20170829
  Receipt Date: 20170829
  Transmission Date: 20171127
  Serious: Yes (Other)
  Sender: FDA-Public Use
  Company Number: AU-TAKEDA-2017TUS017786

PATIENT

DRUGS (1)
  1. VEDOLIZUMAB [Suspect]
     Active Substance: VEDOLIZUMAB
     Indication: COLITIS ULCERATIVE
     Dosage: UNK
     Route: 042

REACTIONS (8)
  - Strongyloidiasis [Unknown]
  - Nasopharyngitis [Unknown]
  - Colectomy [Unknown]
  - Salmonellosis [Unknown]
  - Klebsiella sepsis [Unknown]
  - Cytomegalovirus infection [Unknown]
  - Campylobacter infection [Unknown]
  - Clostridium difficile infection [Unknown]
